FAERS Safety Report 5669419-5 (Version None)
Quarter: 2008Q1

REPORT INFORMATION
  Report Type: 
  Country: None (occurrence: None)
  Receive Date: 20080317
  Receipt Date: 20080310
  Transmission Date: 20080703
  Serious: Yes (Other)
  Sender: FDA-Public Use
  Company Number: A0714327A

PATIENT

DRUGS (2)
  1. TYKERB [Suspect]
     Route: 048
  2. RADIATION THERAPY [Concomitant]

REACTIONS (1)
  - NECROSIS [None]
